FAERS Safety Report 8582075 (Version 4)
Quarter: 2014Q1

REPORT INFORMATION
  Report Type: Report from Study
  Country: US (occurrence: US)
  Receive Date: 20120528
  Receipt Date: 20140114
  Transmission Date: 20141002
  Serious: No
  Sender: FDA-Public Use
  Company Number: PHEH2012US000522

PATIENT
  Age: 59 Year
  Sex: Female
  Weight: 90.7 kg

DRUGS (12)
  1. TASIGNA [Suspect]
     Indication: ACUTE MYELOID LEUKAEMIA
     Dosage: 300 MG, Q12H
     Route: 048
     Dates: start: 20100720
  2. METFORMIN [Concomitant]
  3. ZOCOR [Concomitant]
     Dosage: UNK UKN, UNK
  4. ZANTAC [Concomitant]
     Dosage: UNK UKN, UNK
  5. ALLOPURINOL [Concomitant]
     Dosage: UNK UKN, UNK
  6. CLARITIN [Concomitant]
  7. MULTI-VIT [Concomitant]
     Dosage: UNK UKN, UNK
  8. MOTRIN [Concomitant]
  9. PRAVASTATIN [Concomitant]
     Dosage: UNK UKN, UNK
  10. COLACE [Concomitant]
  11. CYCLOBENZAPRINE [Concomitant]
     Dosage: UNK UKN, UNK
  12. IBUPROFEN [Concomitant]

REACTIONS (5)
  - Rash [Recovering/Resolving]
  - Migraine [Not Recovered/Not Resolved]
  - Muscle spasms [Recovered/Resolved]
  - Nasopharyngitis [Recovering/Resolving]
  - Migraine with aura [Not Recovered/Not Resolved]
